FAERS Safety Report 6882737-8 (Version None)
Quarter: 2010Q3

REPORT INFORMATION
  Report Type: 
  Country: None (occurrence: None)
  Receive Date: 20100729
  Receipt Date: 20100720
  Transmission Date: 20110219
  Serious: Yes (Hospitalization)
  Sender: FDA-Public Use
  Company Number: CH-ROCHE-716417

PATIENT
  Age: 69 Year
  Sex: Female

DRUGS (8)
  1. VALIUM [Suspect]
     Dosage: FREQUENCY: 100 ONCE
     Route: 048
     Dates: start: 20100411, end: 20100411
  2. SURMONTIL [Interacting]
     Dosage: FREQUENCY: 100 ONCE
     Route: 048
     Dates: start: 20100411, end: 20100411
  3. ESCITALOPRAM [Concomitant]
     Dosage: DOSE: 1-0-0
     Route: 048
  4. SERETIDE [Concomitant]
     Dosage: SERETIDE 250, DOSE: 1-0-1
     Route: 055
  5. NEXIUM [Concomitant]
     Dosage: DOSE: 0-0-1
     Route: 048
  6. CALCIMAGON D [Concomitant]
     Dosage: CALCIMAGON D3, DOSE: 1-0-0
     Route: 048
  7. BONIVA [Concomitant]
     Route: 058
  8. BLOPRESS PLUS [Concomitant]
     Dosage: DOSE: 1-0-0
     Route: 048

REACTIONS (4)
  - ANTICHOLINERGIC SYNDROME [None]
  - COMA [None]
  - DRUG INTERACTION [None]
  - INTENTIONAL OVERDOSE [None]
